FAERS Safety Report 8644925 (Version 2)
Quarter: 2013Q3

REPORT INFORMATION
  Report Type: Spontaneous
  Country: NO (occurrence: NO)
  Receive Date: 20120702
  Receipt Date: 20130911
  Transmission Date: 20140515
  Serious: Yes (Hospitalization, Other)
  Sender: FDA-Public Use
  Company Number: NO-BAYER-2012-061209

PATIENT
  Age: 22 Year
  Sex: Female

DRUGS (3)
  1. YASMIN [Suspect]
     Indication: CONTRACEPTION
     Dosage: UNK
     Dates: start: 20090730, end: 20090902
  2. YASMINELLE [Suspect]
  3. LORATADINE [Concomitant]
     Dosage: 10 MG, QD

REACTIONS (21)
  - Pulmonary embolism [None]
  - Pulmonary thrombosis [None]
  - Urinary tract infection [None]
  - Rash generalised [None]
  - Dyspnoea [None]
  - Asthenia [None]
  - Fatigue [None]
  - Palpitations [None]
  - Tachycardia [None]
  - Weight decreased [None]
  - Pyelonephritis acute [None]
  - Dysuria [None]
  - Abdominal pain lower [None]
  - General physical health deterioration [None]
  - Pyrexia [None]
  - Nausea [None]
  - Vomiting [None]
  - Painful respiration [None]
  - Muscle spasms [Recovered/Resolved]
  - Endocrine disorder [None]
  - Metrorrhagia [None]
